FAERS Safety Report 6305580-7 (Version None)
Quarter: 2009Q3

REPORT INFORMATION
  Report Type: 
  Country: None (occurrence: None)
  Receive Date: 20090807
  Receipt Date: 20090728
  Transmission Date: 20100115
  Serious: Yes (Other)
  Sender: FDA-Public Use
  Company Number: SPV1-2009-01523

PATIENT
  Age: 6 Year
  Sex: Male
  Weight: 24 kg

DRUGS (5)
  1. ELAPRASE [Suspect]
     Indication: MUCOPOLYSACCHARIDOSIS II
     Dosage: 0.5 MG/KG, 1X/WEEK, IV DRIP
     Route: 042
     Dates: start: 20070418
  2. ADRENALINA /00003901/ (EPINEPHRINE) [Concomitant]
  3. HYDROCORTISON /00028601/ (HYDROCORTISONE) [Concomitant]
  4. IBUPROFEN /00109205/ (IBUPROFEN SODIUM) [Concomitant]
  5. DEXCHLORPHENIRAMINE /00043702/ (DEXCHLORPHENIRAMINE MALEATE) [Concomitant]

REACTIONS (4)
  - ASPHYXIA [None]
  - INFUSION RELATED REACTION [None]
  - PRURITUS GENITAL [None]
  - SALIVARY HYPERSECRETION [None]
